FAERS Safety Report 5888217-0 (Version None)
Quarter: 2008Q3

REPORT INFORMATION
  Report Type: 
  Country: None (occurrence: None)
  Receive Date: 20080916
  Receipt Date: 20080903
  Transmission Date: 20090109
  Serious: Yes (Death, Life-Threatening, Hospitalization, Disabling)
  Sender: FDA-Public Use
  Company Number: WAES 0809USA00715

PATIENT
  Age: 90 Year
  Sex: Male

DRUGS (6)
  1. VYTORIN [Suspect]
     Indication: ACUTE CORONARY SYNDROME
     Dosage: 10-40 MG/DAILY PO
     Route: 048
     Dates: start: 20070104, end: 20080720
  2. TAB PLACEBO (UNSPECIFIED) [Suspect]
     Indication: ACUTE CORONARY SYNDROME
     Dosage: PO
     Route: 048
     Dates: start: 20070104, end: 20080720
  3. TAB PLACEBO (UNSPECIFIED) [Suspect]
     Indication: ACUTE CORONARY SYNDROME
     Dosage: PO
     Route: 048
     Dates: start: 20070104, end: 20080720
  4. COVERSYL (PERINDOPRIL ARGININE) [Concomitant]
  5. KARDEGIC [Concomitant]
  6. SECTRAL [Concomitant]

REACTIONS (1)
  - BILE DUCT CANCER [None]
